FAERS Safety Report 14967419 (Version 1)
Quarter: 2018Q2

REPORT INFORMATION
  Report Type: Spontaneous
  Country: US (occurrence: US)
  Receive Date: 20180604
  Receipt Date: 20180604
  Transmission Date: 20180711
  Serious: Yes (Other)
  Sender: FDA-Public Use
  Company Number: US-LUPIN PHARMACEUTICALS INC.-2018-04104

PATIENT
  Age: 80 Year
  Sex: Female

DRUGS (1)
  1. DONEPEZIL. [Suspect]
     Active Substance: DONEPEZIL
     Indication: PRODUCT USED FOR UNKNOWN INDICATION
     Dosage: UNK
     Route: 065

REACTIONS (10)
  - Confusional state [Unknown]
  - Pyrexia [Unknown]
  - Dyspnoea [Unknown]
  - Dysuria [Unknown]
  - Nausea [Unknown]
  - Loss of consciousness [Unknown]
  - Vomiting [Unknown]
  - Hypotension [Unknown]
  - Abdominal pain [Unknown]
  - Syncope [Unknown]
